FAERS Safety Report 10664512 (Version 1)
Quarter: 2014Q4

REPORT INFORMATION
  Report Type: Spontaneous
  Country: US (occurrence: None)
  Receive Date: 20141205
  Receipt Date: 20141205
  Transmission Date: 20150529
  Serious: Yes (Hospitalization, Disabling)
  Sender: FDA-Public Use
  Company Number: 163-POMAL-14084657

PATIENT
  Age: 44 Year
  Sex: Female

DRUGS (17)
  1. ALBUTEROL (SALBUTAMOL) [Concomitant]
     Active Substance: ALBUTEROL
  2. SENNOSIDES (SENNOSIDE A+B) [Concomitant]
  3. POTASSIUM CHLORIDE. [Concomitant]
     Active Substance: POTASSIUM CHLORIDE
  4. ONDANSETRON [Concomitant]
     Active Substance: ONDANSETRON
  5. ZOMETA [Concomitant]
     Active Substance: ZOLEDRONIC ACID
  6. DOCUSATE [Concomitant]
     Active Substance: DOCUSATE
  7. MORPHINE [Concomitant]
     Active Substance: MORPHINE
  8. GABAPENTIN. [Concomitant]
     Active Substance: GABAPENTIN
  9. POMALYST [Suspect]
     Active Substance: POMALIDOMIDE
     Indication: PLASMA CELL MYELOMA
     Dosage: 3 MG. 21 IN 28 D, PO
     Route: 048
     Dates: start: 20140814, end: 20140818
  10. NORCO (VICODIN) [Concomitant]
  11. OMEPRAZOLE. [Concomitant]
     Active Substance: OMEPRAZOLE
  12. CYCLOBENZAPRINE [Concomitant]
     Active Substance: CYCLOBENZAPRINE
  13. NORTRIPTYLINE [Concomitant]
     Active Substance: NORTRIPTYLINE
  14. CIPROFLOXACIN. [Concomitant]
     Active Substance: CIPROFLOXACIN
  15. CEPHALEXIN. [Concomitant]
     Active Substance: CEPHALEXIN
  16. ACYCLOVIR (ACICLOVIR) [Concomitant]
  17. FENTANYL. [Concomitant]
     Active Substance: FENTANYL

REACTIONS (2)
  - Plasma cell myeloma [None]
  - Acute kidney injury [None]

NARRATIVE: CASE EVENT DATE: 20140818
